FAERS Safety Report 8985196 (Version 8)
Quarter: 2013Q1

REPORT INFORMATION
  Report Type: Report from Study
  Country: IL (occurrence: IL)
  Receive Date: 20121224
  Receipt Date: 20130312
  Transmission Date: 20140127
  Serious: Yes (Life-Threatening, Hospitalization, Other)
  Sender: FDA-Public Use
  Company Number: IL-009507513-1212ISR009659

PATIENT
  Age: 9 Year
  Sex: Female
  Weight: 29.5 kg

DRUGS (5)
  1. APREPITANT [Suspect]
     Indication: PROPHYLAXIS OF NAUSEA AND VOMITING
     Dosage: 3.48 ML, ONCE
     Route: 048
     Dates: start: 20121217, end: 20121217
  2. ONDANSETRON [Suspect]
     Indication: PROPHYLAXIS OF NAUSEA AND VOMITING
     Dosage: 5.4 MG, QAM
     Route: 042
     Dates: start: 20121109, end: 20121112
  3. ONDANSETRON [Suspect]
     Dosage: 5 MG, QAM
     Route: 042
     Dates: start: 20121217, end: 20121217
  4. METHOTREXATE [Suspect]
     Indication: BONE SARCOMA
     Dosage: 12000 MG, QD
     Route: 042
     Dates: start: 20121217, end: 20121217
  5. SULFAMETHOXAZOLE (+) TRIMETHOPRIM [Concomitant]
     Indication: ANTIFUNGAL PROPHYLAXIS
     Dosage: UNK UNK, QOD
     Route: 048
     Dates: start: 20121112

REACTIONS (2)
  - Anaphylactic shock [Recovered/Resolved]
  - Toxicity to various agents [Recovered/Resolved]
